FAERS Safety Report 17336989 (Version 2)
Quarter: 2020Q1

REPORT INFORMATION
  Report Type: Spontaneous
  Country: US (occurrence: US)
  Receive Date: 20200128
  Receipt Date: 20200310
  Transmission Date: 20200409
  Serious: Yes (Hospitalization)
  Sender: FDA-Public Use
  Company Number: US-PFIZER INC-2020037425

PATIENT
  Age: 85 Year
  Sex: Female

DRUGS (14)
  1. VYNDAMAX [Interacting]
     Active Substance: TAFAMIDIS
     Indication: CARDIOMYOPATHY
     Dosage: 61 MG, DAILY
     Route: 048
     Dates: start: 20191101, end: 20191126
  2. HYDROCORTISONE. [Concomitant]
     Active Substance: HYDROCORTISONE
     Dosage: UNK UNK, 2X/DAY
  3. XALATAN [Concomitant]
     Active Substance: LATANOPROST
     Dosage: UNK UNK, 1X/DAY [PLACE 1 DROP INTO THE LEFT EYE NIGHTLY AT BEDTIME]
  4. MIRALAX [Concomitant]
     Active Substance: POLYETHYLENE GLYCOL 3350
     Dosage: 17 G, AS NEEDED
     Route: 048
  5. DEMADEX [Concomitant]
     Active Substance: TORSEMIDE
     Dosage: 20 MG, DAILY
     Route: 048
  6. COSOPT [Concomitant]
     Active Substance: DORZOLAMIDE HYDROCHLORIDE\TIMOLOL MALEATE
     Dosage: UNK UNK, DAILY(PLACE 1 DROP INTO EACH EYE 2 (TWO) TIMES A DAY) [22.3-6.8 MG/ML ]
     Route: 047
  7. LIPITOR [Suspect]
     Active Substance: ATORVASTATIN CALCIUM
     Dosage: 80 MG, DAILY
     Route: 048
  8. PACERONE [Suspect]
     Active Substance: AMIODARONE HYDROCHLORIDE
     Dosage: 200 MG, DAILY
     Route: 048
  9. ZYLOPRIM [Concomitant]
     Active Substance: ALLOPURINOL
     Dosage: 100 MG, DAILY
     Route: 048
  10. VITAMIN D3 [Concomitant]
     Active Substance: CHOLECALCIFEROL
     Dosage: 1000 IU, DAILY
     Route: 048
  11. ASPIRIN EC [Concomitant]
     Active Substance: ASPIRIN
     Dosage: 81 MG, DAILY
     Route: 048
  12. TOPROL XL [Concomitant]
     Active Substance: METOPROLOL SUCCINATE
     Dosage: 50 MG, DAILY [TAKE 2 TABLET]
     Route: 048
  13. OCEAN SALINE NASAL SPRAY [Concomitant]
     Active Substance: SODIUM CHLORIDE
     Indication: NASAL CONGESTION
     Dosage: UNK UNK, AS NEEDED
     Route: 045
  14. ELIQUIS [Concomitant]
     Active Substance: APIXABAN
     Indication: ATRIAL FLUTTER
     Dosage: 2.5 MG, 2X/DAY
     Route: 048

REACTIONS (11)
  - Abdominal pain [Unknown]
  - Peripheral swelling [Unknown]
  - Diarrhoea [Unknown]
  - Drug interaction [Unknown]
  - Chest pain [Unknown]
  - Rhabdomyolysis [Unknown]
  - Transaminases increased [Unknown]
  - Blood creatine phosphokinase increased [Recovered/Resolved]
  - Dyspnoea [Unknown]
  - Asthenia [Recovered/Resolved]
  - Liver function test abnormal [Recovered/Resolved]

NARRATIVE: CASE EVENT DATE: 20191119
